FAERS Safety Report 15191350 (Version 1)
Quarter: 2018Q3

REPORT INFORMATION
  Report Type: Report from Study
  Country: US (occurrence: US)
  Receive Date: 20180724
  Receipt Date: 20180724
  Transmission Date: 20181010
  Serious: No
  Sender: FDA-Public Use
  Company Number: US-AMGEN-USASL2018028450

PATIENT
  Age: 78 Year
  Sex: Female

DRUGS (1)
  1. KYPROLIS [Suspect]
     Active Substance: CARFILZOMIB
     Indication: PLASMA CELL MYELOMA
     Dosage: UNK
     Route: 065

REACTIONS (9)
  - Pyrexia [Unknown]
  - Tremor [Unknown]
  - Platelet count decreased [Unknown]
  - Weight decreased [Unknown]
  - Chills [Unknown]
  - Night sweats [Unknown]
  - Dysgeusia [Unknown]
  - Fatigue [Unknown]
  - Epistaxis [Unknown]
